FAERS Safety Report 5414773-2 (Version None)
Quarter: 2007Q3

REPORT INFORMATION
  Report Type: 
  Country: None (occurrence: None)
  Receive Date: 20070713
  Receipt Date: 20070423
  Transmission Date: 20080115
  Serious: Yes (Hospitalization)
  Sender: FDA-Public Use
  Company Number: US-JNJFOC-20070202010

PATIENT
  Age: 24 Year
  Sex: Female
  Weight: 80.7403 kg

DRUGS (6)
  1. ORTHO EVRA [Suspect]
     Indication: DRUG USE FOR UNKNOWN INDICATION
     Dosage: TRANSDERMAL
     Route: 062
     Dates: start: 20021001, end: 20060310
  2. DARVOCET-N 100 [Concomitant]
  3. PREDISONE (PROCAINAMIDE HYDROCHLORIDE) [Concomitant]
  4. ACETAMINOPHEN [Concomitant]
  5. FERROUS SULFATE TAB [Concomitant]
  6. INDOMETHACIN [Concomitant]

REACTIONS (1)
  - EMBOLISM [None]
